FAERS Safety Report 11969027 (Version 1)
Quarter: 2016Q1

REPORT INFORMATION
  Report Type: Spontaneous
  Country: US (occurrence: US)
  Receive Date: 20160128
  Receipt Date: 20160128
  Transmission Date: 20160526
  Serious: Yes (Hospitalization)
  Sender: FDA-Public Use
  Company Number: US-ROCHE-1698782

PATIENT
  Age: 29 Year
  Sex: Male

DRUGS (35)
  1. OXYCODONE [Concomitant]
     Active Substance: OXYCODONE
     Route: 048
     Dates: start: 20151216
  2. MORPHINE [Concomitant]
     Active Substance: MORPHINE
     Route: 048
     Dates: start: 20151216
  3. BACTRIM DS [Concomitant]
     Active Substance: SULFAMETHOXAZOLE\TRIMETHOPRIM
     Route: 048
  4. ZYRTEC [Concomitant]
     Active Substance: CETIRIZINE HYDROCHLORIDE
     Route: 048
  5. CIPROFLOXACIN. [Concomitant]
     Active Substance: CIPROFLOXACIN
  6. PANTOPRAZOLE [Concomitant]
     Active Substance: PANTOPRAZOLE SODIUM
     Dosage: ONE TABLET TWICE A DAY
     Route: 048
  7. BENZONATATE. [Concomitant]
     Active Substance: BENZONATATE
     Dosage: 1 CAPS 3 TIMES A DAY
     Route: 048
     Dates: start: 20151210
  8. BUDESONIDE. [Concomitant]
     Active Substance: BUDESONIDE
     Dosage: 1 CAPS 3 TIMES A DAY
     Route: 048
  9. TACROLIMUS. [Concomitant]
     Active Substance: TACROLIMUS
     Dosage: 5 CAPSULES ORALLY FOR EVERY 12 HOURS
     Route: 048
     Dates: start: 20151217, end: 20160116
  10. IMITREX [Concomitant]
     Active Substance: SUMATRIPTAN SUCCINATE
     Indication: HEADACHE
     Route: 048
     Dates: start: 20151203
  11. GABAPENTIN. [Concomitant]
     Active Substance: GABAPENTIN
     Route: 048
     Dates: start: 20151023
  12. BACTRIM DS [Concomitant]
     Active Substance: SULFAMETHOXAZOLE\TRIMETHOPRIM
     Route: 048
  13. BIAXIN [Concomitant]
     Active Substance: CLARITHROMYCIN
  14. URSODIOL. [Concomitant]
     Active Substance: URSODIOL
     Route: 048
  15. ZOFRAN ODT [Concomitant]
     Active Substance: ONDANSETRON HYDROCHLORIDE
     Route: 048
     Dates: start: 20151231
  16. MIRTAZAPINE. [Concomitant]
     Active Substance: MIRTAZAPINE
     Route: 048
     Dates: start: 20150330
  17. CELLCEPT [Suspect]
     Active Substance: MYCOPHENOLATE MOFETIL\MYCOPHENOLATE MOFETIL HYDROCHLORIDE
     Indication: GRAFT VERSUS HOST DISEASE
     Route: 065
     Dates: start: 20150522
  18. ERGOCALCIFEROL. [Concomitant]
     Active Substance: ERGOCALCIFEROL
     Dosage: 1 CAPSULE
     Route: 048
     Dates: start: 20160104
  19. AMOXICILLIN/CLAVULANATE [Concomitant]
     Active Substance: AMOXICILLIN\CLAVULANATE POTASSIUM
     Route: 048
     Dates: start: 20151215, end: 20151228
  20. HALDOL [Concomitant]
     Active Substance: HALOPERIDOL
     Indication: DYSTONIA
     Route: 065
     Dates: start: 20141102
  21. COMPAZINE [Concomitant]
     Active Substance: PROCHLORPERAZINE MALEATE
     Indication: DYSTONIA
  22. LISINOPRIL. [Concomitant]
     Active Substance: LISINOPRIL
     Route: 048
     Dates: start: 20151210
  23. ACYCLOVIR. [Concomitant]
     Active Substance: ACYCLOVIR
     Route: 048
     Dates: start: 20150826
  24. LORAZEPAM. [Concomitant]
     Active Substance: LORAZEPAM
     Indication: ANXIETY
     Route: 048
     Dates: start: 20150707
  25. MAGNESIUM SULFATE. [Concomitant]
     Active Substance: MAGNESIUM SULFATE
     Dosage: 4 GM ADDED TO 100 ML INTRAVENOUS SOLUTION
     Route: 065
  26. MICAFUNGIN [Concomitant]
     Active Substance: MICAFUNGIN
     Route: 042
  27. SIROLIMUS. [Concomitant]
     Active Substance: SIROLIMUS
     Route: 048
     Dates: start: 20160104
  28. VENTOLIN [Concomitant]
     Active Substance: ALBUTEROL SULFATE
     Route: 065
     Dates: start: 20150511
  29. METOPROLOL SUCCINATE. [Concomitant]
     Active Substance: METOPROLOL SUCCINATE
     Route: 048
  30. PHENERGAN [Concomitant]
     Active Substance: PROMETHAZINE HYDROCHLORIDE
     Indication: DYSTONIA
  31. AMOXICILLIN/CLAVULANATE [Concomitant]
     Active Substance: AMOXICILLIN\CLAVULANATE POTASSIUM
     Route: 048
     Dates: start: 20151215, end: 20151228
  32. DRONABINOL. [Concomitant]
     Active Substance: DRONABINOL
     Route: 048
     Dates: start: 20151210
  33. CYCLOBENZAPRINE [Concomitant]
     Active Substance: CYCLOBENZAPRINE
     Indication: MUSCLE SPASMS
     Route: 048
     Dates: start: 20151203
  34. TOPIRAMATE. [Concomitant]
     Active Substance: TOPIRAMATE
     Route: 048
     Dates: start: 20151023
  35. PREDNISOLONE. [Concomitant]
     Active Substance: PREDNISOLONE
     Indication: SWELLING FACE
     Route: 047

REACTIONS (7)
  - Febrile neutropenia [Unknown]
  - Pneumonia [Unknown]
  - Infection [Unknown]
  - Graft versus host disease [Unknown]
  - Hypogammaglobulinaemia [Unknown]
  - Cytomegalovirus viraemia [Unknown]
  - Pancytopenia [Unknown]

NARRATIVE: CASE EVENT DATE: 20150607
